FAERS Safety Report 23276856 (Version 1)
Quarter: 2023Q4

REPORT INFORMATION
  Report Type: Spontaneous
  Country: DE (occurrence: DE)
  Receive Date: 20231208
  Receipt Date: 20231208
  Transmission Date: 20240109
  Serious: Yes (Other)
  Sender: FDA-Public Use
  Company Number: DE-009507513-2310DEU002160

PATIENT
  Age: 41 Year
  Sex: Female
  Weight: 55 kg

DRUGS (3)
  1. CARBOPLATIN [Suspect]
     Active Substance: CARBOPLATIN
     Indication: Triple negative breast cancer
     Dosage: UNK
  2. PACLITAXEL [Suspect]
     Active Substance: PACLITAXEL
     Indication: Triple negative breast cancer
     Dosage: UNK
  3. KEYTRUDA [Suspect]
     Active Substance: PEMBROLIZUMAB
     Indication: Triple negative breast cancer
     Dosage: 200 MILLIGRAM, EVERY 3 WEEKS
     Route: 042
     Dates: start: 20221129, end: 20230809

REACTIONS (5)
  - Immune-mediated pancreatitis [Recovering/Resolving]
  - Mastectomy [Unknown]
  - Lipase increased [Recovered/Resolved]
  - Mammoplasty [Unknown]
  - Amylase increased [Unknown]

NARRATIVE: CASE EVENT DATE: 20230101
